FAERS Safety Report 5557991-5 (Version None)
Quarter: 2007Q4

REPORT INFORMATION
  Report Type: 
  Country: None (occurrence: None)
  Receive Date: 20071214
  Receipt Date: 20071127
  Transmission Date: 20080405
  Serious: Yes (Other)
  Sender: FDA-Public Use
  Company Number: GB-RANBAXY-2007RR-11751

PATIENT

DRUGS (15)
  1. CIPROFLOXACIN 500 MG FILM-COATED TABLETS [Suspect]
     Indication: LOCALISED INFECTION
     Dosage: 500 MG, BID
     Route: 048
     Dates: start: 20071018, end: 20071025
  2. ADIZEM [Concomitant]
     Dosage: 300 MG, UNK
     Route: 048
  3. DISPERSIBLE ASPIRIN 75MG TABLETS BP [Concomitant]
     Dosage: 75 MG, UNK
     Route: 048
  4. BISOPROLOL 5MG TABLETS [Concomitant]
     Dosage: 2.5 MG, QD
     Route: 048
  5. CLOTRIMAZOLE [Concomitant]
     Dosage: UNK
     Route: 061
     Dates: start: 20071027
  6. CITALOPRAM 20MG TABLET [Concomitant]
     Dosage: 20 MG, UNK
     Route: 048
  7. ENOXAPARIN SODIUM [Concomitant]
     Dosage: 40 MG, QD
     Route: 058
     Dates: start: 20071026
  8. FUROSEMIDE TABLETS BP 40MG [Concomitant]
     Dosage: 40 MG, UNK
     Route: 048
  9. GABAPENTIN BASICS B 600MG FILMTABLETTEN [Concomitant]
     Dosage: 300 MG, TID
     Route: 048
  10. MIXTARD HUMAN 70/30 [Concomitant]
     Dosage: UNK
     Route: 058
  11. OMEPRAZOLE [Concomitant]
     Dosage: 20 MG, QD
     Route: 048
  12. OXYCONTIN [Concomitant]
     Dosage: 20 MG, BID
     Route: 048
     Dates: start: 20071019
  13. OXYNORM [Concomitant]
     Dosage: UNK
     Route: 048
     Dates: start: 20071019
  14. ACETAMINOPHEN [Concomitant]
     Dosage: 1 G, QID
     Route: 048
  15. SIMVASTATIN 20MG TABLETS [Concomitant]
     Dosage: 20 MG, UNK
     Route: 048
     Dates: end: 20071018

REACTIONS (2)
  - ERYTHEMA ANNULARE [None]
  - ERYTHEMA MULTIFORME [None]
